FAERS Safety Report 7815097-6 (Version None)
Quarter: 2011Q4

REPORT INFORMATION
  Report Type: 
  Country: None (occurrence: None)
  Receive Date: 20111014
  Receipt Date: 20111014
  Transmission Date: 20120403
  Serious: Yes (Other)
  Sender: FDA-Public Use
  Company Number: None

PATIENT
  Sex: Female

DRUGS (1)
  1. SPRYCEL [Suspect]
     Indication: MALIGNANT NIPPLE NEOPLASM
     Dosage: 70MG
     Route: 048
     Dates: start: 20100301, end: 20110930

REACTIONS (1)
  - PULMONARY ARTERIAL HYPERTENSION [None]
